FAERS Safety Report 17646880 (Version 1)
Quarter: 2020Q2

REPORT INFORMATION
  Report Type: Spontaneous
  Country: US (occurrence: US)
  Receive Date: 20200408
  Receipt Date: 20200408
  Transmission Date: 20200713
  Serious: Yes (Other)
  Sender: FDA-Public Use
  Company Number: US-CORDEN PHARMA LATINA S.P.A.-US-2020COR000007

PATIENT

DRUGS (8)
  1. SIROLIMUS. [Suspect]
     Active Substance: SIROLIMUS
     Indication: NEOPLASM
     Dosage: STARTING DOSE 1 MG/M^2, DOSE LEVEL TO 0.5 MG/M^2, TO A MAXIMUM OF 3 MG/M^2, QD, 42-DAY CYCLES
     Route: 048
  2. SIROLIMUS. [Suspect]
     Active Substance: SIROLIMUS
     Indication: BRAIN NEOPLASM
  3. CELECOXIB. [Suspect]
     Active Substance: CELECOXIB
     Indication: BRAIN NEOPLASM
  4. ETOPOSIDE. [Suspect]
     Active Substance: ETOPOSIDE
     Indication: BRAIN NEOPLASM
  5. CYCLOPHOSPHAMIDE. [Suspect]
     Active Substance: CYCLOPHOSPHAMIDE
     Indication: BRAIN NEOPLASM
  6. CELECOXIB. [Suspect]
     Active Substance: CELECOXIB
     Indication: NEOPLASM
     Dosage: 100 MG, BID, 42-DAY CYCLES
     Route: 048
  7. ETOPOSIDE. [Suspect]
     Active Substance: ETOPOSIDE
     Indication: NEOPLASM
     Dosage: 50 MG/M2, QD, MAXIMUM DOSE 100 MG, ALTERNATING EVERY 21 DAYS IN 42 DAY CYCLES
     Route: 048
  8. CYCLOPHOSPHAMIDE. [Suspect]
     Active Substance: CYCLOPHOSPHAMIDE
     Indication: NEOPLASM
     Dosage: 2.5 MG/KG/DAY, MAXIUM DOSE 100 MG, ALTERNATING EVERY 21 DAYS IN 42-DAY CYCLES
     Route: 048

REACTIONS (1)
  - Hypertriglyceridaemia [Recovered/Resolved]
